FAERS Safety Report 9744095 (Version 1)
Quarter: 2013Q4

REPORT INFORMATION
  Report Type: Spontaneous
  Country: JP (occurrence: JP)
  Receive Date: 20131210
  Receipt Date: 20131210
  Transmission Date: 20140711
  Serious: Yes (Other)
  Sender: FDA-Public Use
  Company Number: JP-GLAXOSMITHKLINE-B0951559A

PATIENT
  Age: 5 Year
  Sex: 0

DRUGS (1)
  1. SERETIDE (50MCG/100MCG) [Suspect]
     Indication: ASTHMA
     Route: 055

REACTIONS (1)
  - Leukoplakia oral [Unknown]
